FAERS Safety Report 9275500 (Version 3)
Quarter: 2013Q2

REPORT INFORMATION
  Report Type: Spontaneous
  Country: US (occurrence: US)
  Receive Date: 20130507
  Receipt Date: 20130517
  Transmission Date: 20140414
  Serious: No
  Sender: FDA-Public Use
  Company Number: US-PFIZER INC-2013138460

PATIENT
  Age: 35 Year
  Sex: Male
  Weight: 75.28 kg

DRUGS (4)
  1. VIAGRA [Suspect]
     Indication: ORGASM ABNORMAL
     Dosage: 100 MG, AS NEEDED
     Dates: start: 2011
  2. TRAMADOL HCL [Suspect]
     Indication: INGUINAL HERNIA
     Dosage: 50 MG, 2X/DAY
     Dates: start: 2010
  3. TRAMADOL HCL [Suspect]
     Indication: SPINAL DISORDER
  4. NEURONTIN [Concomitant]
     Indication: NEUROPATHY PERIPHERAL
     Dosage: UNK

REACTIONS (3)
  - Bronchitis [Not Recovered/Not Resolved]
  - Pre-existing condition improved [Unknown]
  - Therapeutic response unexpected [Unknown]
